FAERS Safety Report 7757646-2 (Version None)
Quarter: 2011Q3

REPORT INFORMATION
  Report Type: 
  Country: None (occurrence: None)
  Receive Date: 20110916
  Receipt Date: 20110902
  Transmission Date: 20111222
  Serious: Yes (Other)
  Sender: FDA-Public Use
  Company Number: PHHY2011BR39408

PATIENT
  Sex: Male

DRUGS (2)
  1. EXFORGE [Suspect]
     Indication: HYPERTENSION
     Dosage: 0.5 DF (320/10 MG), DAILY
     Route: 048
     Dates: start: 20090101
  2. AMLODIPINE [Suspect]

REACTIONS (4)
  - ARTERIAL OCCLUSIVE DISEASE [None]
  - OEDEMA PERIPHERAL [None]
  - AORTIC ANEURYSM [None]
  - WRONG TECHNIQUE IN DRUG USAGE PROCESS [None]
